FAERS Safety Report 12875793 (Version 2)
Quarter: 2020Q3

REPORT INFORMATION
  Report Type: Spontaneous
  Country: US (occurrence: US)
  Receive Date: 20161024
  Receipt Date: 20200820
  Transmission Date: 20201102
  Serious: No
  Sender: FDA-Public Use
  Company Number: US-JAZZ-2016-US-015184

PATIENT
  Sex: Female

DRUGS (24)
  1. XYREM [Suspect]
     Active Substance: SODIUM OXYBATE
     Dosage: 2.25 G, BID
     Route: 048
     Dates: start: 200908, end: 2010
  2. FENTANYL [FENTANYL CITRATE] [Concomitant]
     Active Substance: FENTANYL CITRATE
  3. FLEXERIL [Concomitant]
     Active Substance: CYCLOBENZAPRINE HYDROCHLORIDE
  4. XYREM [Suspect]
     Active Substance: SODIUM OXYBATE
     Indication: NARCOLEPSY
     Dosage: 2.5 G, BID
     Route: 048
     Dates: start: 200904, end: 2009
  5. XYREM [Suspect]
     Active Substance: SODIUM OXYBATE
     Dosage: 2.5 G, BID
     Route: 048
     Dates: start: 201512, end: 201608
  6. ECOTRIN [Concomitant]
     Active Substance: ASPIRIN
  7. LIDODERM [Concomitant]
     Active Substance: LIDOCAINE
  8. NORVASC [Concomitant]
     Active Substance: AMLODIPINE BESYLATE
  9. XYREM [Suspect]
     Active Substance: SODIUM OXYBATE
     Indication: INSOMNIA
     Dosage: 2.25 G, BID
     Route: 048
     Dates: start: 200902, end: 2009
  10. CARAFATE [Concomitant]
     Active Substance: SUCRALFATE
  11. NUVIGIL [Concomitant]
     Active Substance: ARMODAFINIL
  12. PERCOCET [Concomitant]
     Active Substance: ACETAMINOPHEN\OXYCODONE HYDROCHLORIDE
  13. XYREM [Suspect]
     Active Substance: SODIUM OXYBATE
     Dosage: DOSE ADJUSTMENTS
     Route: 048
     Dates: start: 201101, end: 201512
  14. ATROVENT HFA [Concomitant]
     Active Substance: IPRATROPIUM BROMIDE
  15. PROVIGIL [Concomitant]
     Active Substance: MODAFINIL
  16. TOPAMAX [Concomitant]
     Active Substance: TOPIRAMATE
  17. XYREM [Suspect]
     Active Substance: SODIUM OXYBATE
     Dosage: 2.75 GRAM, BID
     Route: 048
     Dates: start: 201608
  18. SKELAXIN [METAXALONE] [Concomitant]
  19. PRILOSEC [Concomitant]
     Active Substance: OMEPRAZOLE MAGNESIUM
  20. XANAX [Concomitant]
     Active Substance: ALPRAZOLAM
  21. XYREM [Suspect]
     Active Substance: SODIUM OXYBATE
     Dosage: 2.25 G, BID
     Route: 048
     Dates: start: 201010, end: 201101
  22. SYNTHROID [Concomitant]
     Active Substance: LEVOTHYROXINE SODIUM
  23. TEMAZEPAM. [Concomitant]
     Active Substance: TEMAZEPAM
  24. VIVELLE?DOT [Concomitant]
     Active Substance: ESTRADIOL

REACTIONS (1)
  - Memory impairment [Not Recovered/Not Resolved]
